FAERS Safety Report 15066356 (Version 1)
Quarter: 2018Q2

REPORT INFORMATION
  Report Type: Report from Study
  Country: DK (occurrence: DK)
  Receive Date: 20180626
  Receipt Date: 20180626
  Transmission Date: 20180711
  Serious: Yes (Death)
  Sender: FDA-Public Use
  Company Number: DK-ADIENNEP-2018AD000145

PATIENT
  Age: 54 Year
  Sex: Female

DRUGS (1)
  1. THIOTEPA. [Suspect]
     Active Substance: THIOTEPA
     Indication: BONE MARROW CONDITIONING REGIMEN

REACTIONS (1)
  - Pneumonitis [Fatal]
